FAERS Safety Report 25862926 (Version 5)
Quarter: 2025Q4

REPORT INFORMATION
  Report Type: Spontaneous
  Country: JP (occurrence: JP)
  Receive Date: 20250930
  Receipt Date: 20251229
  Transmission Date: 20260117
  Serious: Yes (Disabling)
  Sender: BOEHRINGER INGELHEIM
  Company Number: JP-NBI-2025-BI-098251

PATIENT
  Age: 77 Year
  Sex: Male

DRUGS (6)
  1. OFEV [Suspect]
     Active Substance: NINTEDANIB
     Indication: Interstitial lung disease
     Dates: start: 20250901, end: 20250914
  2. OFEV [Suspect]
     Active Substance: NINTEDANIB
     Dates: start: 20250915, end: 20251025
  3. OFEV [Suspect]
     Active Substance: NINTEDANIB
     Dosage: IN THE MORNING AND THE EVENING
     Dates: start: 20251104, end: 20251115
  4. OFEV [Suspect]
     Active Substance: NINTEDANIB
     Dosage: IN THE MORNING AND THE EVENING
     Dates: start: 20251119
  5. OFEV [Suspect]
     Active Substance: NINTEDANIB
     Dosage: ONLY IN THE EVENING
     Dates: start: 20251101, end: 20251104
  6. SPIRIVA [Suspect]
     Active Substance: TIOTROPIUM BROMIDE MONOHYDRATE
     Indication: Product used for unknown indication

REACTIONS (15)
  - Coronavirus infection [Recovered/Resolved with Sequelae]
  - Dysphagia [Not Recovered/Not Resolved]
  - Taste disorder [Not Recovered/Not Resolved]
  - Cough [Not Recovered/Not Resolved]
  - Somnolence [Not Recovered/Not Resolved]
  - Malaise [Not Recovered/Not Resolved]
  - Early satiety [Recovered/Resolved]
  - Apathy [Unknown]
  - Decreased appetite [Not Recovered/Not Resolved]
  - Sleep deficit [Not Recovered/Not Resolved]
  - Rhinorrhoea [Recovered/Resolved]
  - Weight decreased [Not Recovered/Not Resolved]
  - Dysphonia [Not Recovered/Not Resolved]
  - Dry mouth [Not Recovered/Not Resolved]
  - Terminal insomnia [Not Recovered/Not Resolved]

NARRATIVE: CASE EVENT DATE: 20250914
